FAERS Safety Report 10580651 (Version 1)
Quarter: 2014Q4

REPORT INFORMATION
  Report Type: Spontaneous
  Country: FR (occurrence: FR)
  Receive Date: 20141113
  Receipt Date: 20141113
  Transmission Date: 20150529
  Serious: Yes (Life-Threatening, Hospitalization, Disabling)
  Sender: FDA-Public Use
  Company Number: FR-BRISTOL-MYERS SQUIBB COMPANY-21587191

PATIENT
  Age: 52 Year
  Sex: Female

DRUGS (10)
  1. DUPHALAC [Suspect]
     Active Substance: LACTULOSE
     Indication: CONSTIPATION
  2. QUETIAPINE [Suspect]
     Active Substance: QUETIAPINE
     Indication: SCHIZOPHRENIA
     Dates: start: 201303
  3. THERALENE [Suspect]
     Active Substance: TRIMEPRAZINE
     Indication: SCHIZOPHRENIA
     Dates: end: 20140820
  4. LEPTICUR [Suspect]
     Active Substance: TROPATEPINE HYDROCHLORIDE
     Indication: SCHIZOPHRENIA
     Dates: start: 20140802
  5. TEMESTA [Concomitant]
     Active Substance: LORAZEPAM
     Indication: SCHIZOPHRENIA
     Route: 048
     Dates: start: 20140825
  6. VALIUM [Suspect]
     Active Substance: DIAZEPAM
     Indication: SCHIZOPHRENIA
     Route: 048
     Dates: start: 20140730, end: 20140820
  7. LOXAPAC [Suspect]
     Active Substance: LOXAPINE SUCCINATE
     Indication: SCHIZOPHRENIA
     Dosage: 110MG,250MG,175MG,100MG,50MG,300MG,375MG.
     Dates: end: 20140803
  8. TERCIAN [Suspect]
     Active Substance: CYAMEMAZINE
     Indication: SCHIZOPHRENIA
     Route: 048
     Dates: start: 20140803, end: 20140820
  9. CLOZAPINE. [Suspect]
     Active Substance: CLOZAPINE
     Indication: SCHIZOPHRENIA
     Route: 048
     Dates: start: 20140808, end: 20140820
  10. ABILIFY [Suspect]
     Active Substance: ARIPIPRAZOLE
     Indication: SCHIZOPHRENIA
     Route: 048
     Dates: start: 2012

REACTIONS (5)
  - Hypotension [Unknown]
  - Necrotising colitis [Recovered/Resolved with Sequelae]
  - Coma [Unknown]
  - Constipation [Recovering/Resolving]
  - Psychiatric decompensation [Unknown]

NARRATIVE: CASE EVENT DATE: 20140630
